FAERS Safety Report 10155701 (Version 3)
Quarter: 2014Q2

REPORT INFORMATION
  Report Type: Report from Study
  Country: UG (occurrence: UG)
  Receive Date: 20140506
  Receipt Date: 20140616
  Transmission Date: 20141212
  Serious: Yes (Life-Threatening, Other)
  Sender: FDA-Public Use
  Company Number: UG-GILEAD-2014-0101523

PATIENT
  Age: 41 Year
  Sex: Male
  Weight: 73 kg

DRUGS (9)
  1. EFAVIRENZ/EMTRICITABINE/TENOFOVIR DISOPROXIL FUMARATE [Suspect]
     Indication: HIV INFECTION
     Dosage: 1100 MG, QD
     Route: 048
     Dates: start: 20130724, end: 20140423
  2. ETOPOSIDE [Suspect]
     Indication: HIV INFECTION
     Dosage: UNK
     Route: 065
     Dates: start: 20130625, end: 20131106
  3. CEFTRIAXONE [Concomitant]
     Route: 042
  4. PACLITAXEL [Concomitant]
     Dosage: 190 MG, UNK
     Route: 065
     Dates: start: 20140508
  5. PACLITAXEL [Concomitant]
     Dosage: 235 UNK, UNK
     Route: 065
     Dates: start: 20140515
  6. DEXAMETHAZONE [Concomitant]
     Dosage: UNK
     Route: 042
     Dates: start: 20140508
  7. DEXAMETHAZONE [Concomitant]
     Dosage: UNK
     Dates: start: 20140515
  8. METOCLOPRAMIDE [Concomitant]
     Dosage: UNK
     Route: 042
     Dates: start: 20140508
  9. METOCLOPRAMIDE [Concomitant]
     Dosage: UNK
     Route: 042
     Dates: start: 20140515

REACTIONS (4)
  - Kaposi^s sarcoma [Unknown]
  - Bacteraemia [Unknown]
  - Anaemia [Unknown]
  - Renal failure acute [Recovering/Resolving]
